FAERS Safety Report 25282885 (Version 2)
Quarter: 2025Q2

REPORT INFORMATION
  Report Type: Spontaneous
  Country: US (occurrence: US)
  Receive Date: 20250508
  Receipt Date: 20250519
  Transmission Date: 20250716
  Serious: Yes (Disabling, Other)
  Sender: AUROBINDO
  Company Number: US-MLMSERVICE-20250422-PI482668-00312-3

PATIENT
  Age: 70 Year
  Sex: Male

DRUGS (4)
  1. TESTOSTERONE [Suspect]
     Active Substance: TESTOSTERONE
     Indication: Blood testosterone
     Route: 065
  2. APIXABAN [Suspect]
     Active Substance: APIXABAN
     Indication: Deep vein thrombosis
     Route: 065
  3. APIXABAN [Suspect]
     Active Substance: APIXABAN
     Indication: Polycythaemia
  4. APIXABAN [Suspect]
     Active Substance: APIXABAN
     Indication: Prophylaxis

REACTIONS (3)
  - Blindness transient [Recovered/Resolved]
  - Polycythaemia [Unknown]
  - Drug ineffective [Unknown]
